FAERS Safety Report 24653273 (Version 1)
Quarter: 2024Q4

REPORT INFORMATION
  Report Type: Spontaneous
  Country: JP (occurrence: JP)
  Receive Date: 20241122
  Receipt Date: 20241122
  Transmission Date: 20250115
  Serious: Yes (Death, Other)
  Sender: PFIZER
  Company Number: JP-PFIZER INC-202400302401

PATIENT
  Age: 6 Month
  Sex: Female

DRUGS (1)
  1. AZITHROMYCIN DIHYDRATE [Suspect]
     Active Substance: AZITHROMYCIN DIHYDRATE
     Dosage: 5 TIMES THE AMOUNT

REACTIONS (3)
  - Death [Fatal]
  - Overdose [Fatal]
  - Off label use [Unknown]

NARRATIVE: CASE EVENT DATE: 20241114
